FAERS Safety Report 7736650-4 (Version None)
Quarter: 2011Q3

REPORT INFORMATION
  Report Type: 
  Country: None (occurrence: None)
  Receive Date: 20110908
  Receipt Date: 20110830
  Transmission Date: 20111222
  Serious: Yes (Disabling)
  Sender: FDA-Public Use
  Company Number: FR-JNJFOC-20110706251

PATIENT
  Sex: Female
  Weight: 72 kg

DRUGS (3)
  1. PREZISTA [Suspect]
     Indication: HIV INFECTION
     Route: 048
  2. PREZISTA [Suspect]
     Route: 048
     Dates: start: 20110518
  3. NORVIR [Suspect]
     Indication: HIV INFECTION
     Dates: start: 20110518

REACTIONS (5)
  - VERTIGO [None]
  - HEADACHE [None]
  - VOMITING [None]
  - NAUSEA [None]
  - HOT FLUSH [None]
